FAERS Safety Report 4459268-8 (Version None)
Quarter: 2004Q3

REPORT INFORMATION
  Report Type: 
  Country: None (occurrence: None)
  Receive Date: 20040923
  Receipt Date: 20040923
  Transmission Date: 20050211
  Serious: No
  Sender: FDA-Public Use
  Company Number: None

PATIENT
  Age: 56 Year
  Sex: Female
  Weight: 86.1834 kg

DRUGS (2)
  1. FLUOXETINE HCL [Suspect]
     Indication: ANXIETY DISORDER
     Dosage: 20 MG 1 A DAY ORAL
     Route: 048
     Dates: start: 20021103, end: 20021212
  2. FLUOXETINE HCL [Suspect]
     Indication: PANIC REACTION
     Dosage: 20 MG 1 A DAY ORAL
     Route: 048
     Dates: start: 20021103, end: 20021212

REACTIONS (2)
  - PANIC ATTACK [None]
  - PHARMACEUTICAL PRODUCT COMPLAINT [None]
